FAERS Safety Report 6246053-X (Version None)
Quarter: 2009Q2

REPORT INFORMATION
  Report Type: 
  Country: None (occurrence: None)
  Receive Date: 20090626
  Receipt Date: 20090320
  Transmission Date: 20091009
  Serious: No
  Sender: FDA-Public Use
  Company Number: A0762738A

PATIENT
  Age: 44 Year
  Sex: Female

DRUGS (1)
  1. SUMATRIPTAN SUCCINATE [Suspect]
     Indication: HEADACHE
     Dosage: 25MG VARIABLE DOSE
     Route: 048
     Dates: start: 20081201

REACTIONS (7)
  - DRUG INEFFECTIVE [None]
  - OVERDOSE [None]
  - PRODUCT QUALITY ISSUE [None]
  - PYREXIA [None]
  - THERAPEUTIC RESPONSE DECREASED [None]
  - TREMOR [None]
  - WRONG TECHNIQUE IN DRUG USAGE PROCESS [None]
